FAERS Safety Report 5563483-X (Version None)
Quarter: 2007Q4

REPORT INFORMATION
  Report Type: 
  Country: None (occurrence: None)
  Receive Date: 20071217
  Receipt Date: 20070712
  Transmission Date: 20080405
  Serious: No
  Sender: FDA-Public Use
  Company Number: US-ASTRAZENECA-2007UW13213

PATIENT
  Age: 57 Year
  Sex: Female
  Weight: 78 kg

DRUGS (10)
  1. CRESTOR [Suspect]
     Indication: BLOOD CHOLESTEROL INCREASED
     Route: 048
     Dates: end: 20070501
  2. CRESTOR [Suspect]
     Indication: HYPERLIPIDAEMIA
     Route: 048
     Dates: end: 20070501
  3. CRESTOR [Suspect]
     Route: 048
     Dates: start: 20050801, end: 20070517
  4. CRESTOR [Suspect]
     Route: 048
     Dates: start: 20050801, end: 20070517
  5. HUMALOG [Concomitant]
  6. COZAAR [Concomitant]
     Route: 048
  7. WELLBUTRIN XL [Concomitant]
     Route: 048
     Dates: start: 20060101
  8. ZOLOFT [Concomitant]
     Indication: DEPRESSION
     Route: 048
  9. SEROQUEL [Concomitant]
     Route: 048
  10. LANTUS [Concomitant]

REACTIONS (4)
  - FACIAL BONES FRACTURE [None]
  - FALL [None]
  - MUSCLE SPASMS [None]
  - MUSCULAR WEAKNESS [None]
